FAERS Safety Report 13720102 (Version 3)
Quarter: 2017Q3

REPORT INFORMATION
  Report Type: Spontaneous
  Country: MY (occurrence: MY)
  Receive Date: 20170706
  Receipt Date: 20170920
  Transmission Date: 20171127
  Serious: Yes (Other)
  Sender: FDA-Public Use
  Company Number: MY-TORRENT-00000071

PATIENT
  Age: 28 Year
  Sex: Female

DRUGS (2)
  1. FOLIC ACID. [Concomitant]
     Active Substance: FOLIC ACID
  2. LAMITOR [Suspect]
     Active Substance: LAMOTRIGINE

REACTIONS (4)
  - Restlessness [Recovered/Resolved]
  - Anger [Recovered/Resolved]
  - Intentional self-injury [Recovered/Resolved]
  - Insomnia [Recovered/Resolved]

NARRATIVE: CASE EVENT DATE: 20140121
